FAERS Safety Report 18760820 (Version 3)
Quarter: 2021Q1

REPORT INFORMATION
  Report Type: Spontaneous
  Country: US (occurrence: US)
  Receive Date: 20210119
  Receipt Date: 20210322
  Transmission Date: 20210419
  Serious: Yes (Other)
  Sender: FDA-Public Use
  Company Number: US-PFIZER INC-2021036061

PATIENT
  Age: 68 Year
  Sex: Male

DRUGS (3)
  1. INLYTA [Suspect]
     Active Substance: AXITINIB
     Dosage: 5 MG
     Dates: start: 20210111
  2. INLYTA [Suspect]
     Active Substance: AXITINIB
     Dosage: 5 MG
     Dates: start: 20210105
  3. INLYTA [Suspect]
     Active Substance: AXITINIB
     Dosage: 5 MG
     Dates: start: 20210115

REACTIONS (3)
  - Diarrhoea [Recovered/Resolved]
  - Fatigue [Unknown]
  - Dry skin [Unknown]

NARRATIVE: CASE EVENT DATE: 2021
